FAERS Safety Report 7123941-3 (Version None)
Quarter: 2010Q4

REPORT INFORMATION
  Report Type: 
  Country: None (occurrence: None)
  Receive Date: 20101126
  Receipt Date: 20101122
  Transmission Date: 20110411
  Serious: Yes (Other)
  Sender: FDA-Public Use
  Company Number: US-PFIZER INC-2010118787

PATIENT
  Sex: Male

DRUGS (6)
  1. CHANTIX [Suspect]
     Indication: SMOKING CESSATION THERAPY
     Dosage: UNK
     Dates: start: 20071001
  2. METFORMIN [Concomitant]
     Indication: DIABETES MELLITUS
     Dosage: UNK
     Dates: start: 20030101
  3. GLIMEPIRIDE [Concomitant]
     Indication: DIABETES MELLITUS
     Dosage: UNK
     Dates: start: 20030101
  4. INSULIN [Concomitant]
     Indication: DIABETES MELLITUS
     Dosage: UNK
     Dates: start: 20030101
  5. GABAPENTIN [Concomitant]
     Indication: DIABETES MELLITUS
     Dosage: UNK
     Dates: start: 20030101
  6. OMEPRAZOLE [Concomitant]
     Indication: DYSPEPSIA
     Dosage: UNK
     Dates: start: 20030101

REACTIONS (7)
  - ANXIETY [None]
  - BRADYPHRENIA [None]
  - DEPRESSION [None]
  - MEMORY IMPAIRMENT [None]
  - MENTAL DISORDER [None]
  - SPEECH DISORDER [None]
  - SUICIDAL IDEATION [None]
